FAERS Safety Report 21590894 (Version 1)
Quarter: 2022Q4

REPORT INFORMATION
  Report Type: Report from Study
  Country: IT (occurrence: IT)
  Receive Date: 20221114
  Receipt Date: 20221114
  Transmission Date: 20230113
  Serious: Yes (Hospitalization)
  Sender: FDA-Public Use
  Company Number: IT-MYLANLABS-2022M1125308

PATIENT
  Age: 49 Year
  Sex: Female

DRUGS (3)
  1. DOXORUBICIN [Suspect]
     Active Substance: DOXORUBICIN
     Indication: Desmoid tumour
     Dosage: 50 MILLIGRAM/SQ. METER (LIPOSOMAL DOXORUBICIN)
     Route: 065
     Dates: start: 2015
  2. DOXORUBICIN [Suspect]
     Active Substance: DOXORUBICIN
     Indication: Desmoid tumour
     Dosage: 75 MILLIGRAM/SQ. METER
     Route: 065
     Dates: start: 2015
  3. DACARBAZINE [Suspect]
     Active Substance: DACARBAZINE
     Indication: Desmoid tumour
     Dosage: 800 MILLIGRAM/SQ. METER
     Route: 065
     Dates: start: 2015

REACTIONS (2)
  - Drug ineffective [Unknown]
  - Disease progression [Unknown]
